FAERS Safety Report 6671507-1 (Version None)
Quarter: 2010Q2

REPORT INFORMATION
  Report Type: 
  Country: None (occurrence: None)
  Receive Date: 20100406
  Receipt Date: 20100406
  Transmission Date: 20101027
  Serious: No
  Sender: FDA-Public Use
  Company Number: None

PATIENT
  Age: 61 Year
  Sex: Male
  Weight: 80.5 kg

DRUGS (2)
  1. SIMVASTATIN [Suspect]
     Indication: BLOOD CHOLESTEROL
     Dosage: SIMVASTATIN 10 MG 3 X/WEEK BY MOUTH
     Route: 048
     Dates: start: 20100101, end: 20100201
  2. SIMVASTATIN [Suspect]
     Indication: CARDIAC DISORDER
     Dosage: SIMVASTATIN 10 MG 3 X/WEEK BY MOUTH
     Route: 048
     Dates: start: 20100101, end: 20100201

REACTIONS (2)
  - BLOOD GLUCOSE INCREASED [None]
  - PAIN IN EXTREMITY [None]
